FAERS Safety Report 11301607 (Version 1)
Quarter: 2015Q3

REPORT INFORMATION
  Report Type: Spontaneous
  Country: US (occurrence: US)
  Receive Date: 20150722
  Receipt Date: 20150722
  Transmission Date: 20151125
  Serious: No
  Sender: FDA-Public Use
  Company Number: US-ELI_LILLY_AND_COMPANY-US200907001680

PATIENT
  Age: 63 Year
  Sex: Male

DRUGS (5)
  1. HUMATROPE [Suspect]
     Active Substance: SOMATROPIN
     Indication: HYPOPITUITARISM
     Dosage: 0.3 MG, DAILY (1/D)
     Route: 058
     Dates: start: 20080520
  2. HYDROCORTISONE. [Concomitant]
     Active Substance: HYDROCORTISONE
  3. TESTIM [Concomitant]
     Active Substance: TESTOSTERONE
  4. MIZAPIN [Concomitant]
  5. LEVOTHYROXINE. [Concomitant]
     Active Substance: LEVOTHYROXINE
     Dosage: 112 MG, 2/D

REACTIONS (8)
  - Sleep apnoea syndrome [Unknown]
  - Heart rate increased [Unknown]
  - Intentional product misuse [Unknown]
  - Bradycardia [Not Recovered/Not Resolved]
  - Insomnia [Unknown]
  - Malaise [Unknown]
  - Tremor [Unknown]
  - Electrocardiogram abnormal [Unknown]

NARRATIVE: CASE EVENT DATE: 2008
